FAERS Safety Report 8223642-4 (Version None)
Quarter: 2012Q1

REPORT INFORMATION
  Report Type: 
  Country: None (occurrence: None)
  Receive Date: 20120321
  Receipt Date: 20120319
  Transmission Date: 20120608
  Serious: No
  Sender: FDA-Public Use
  Company Number: US-PFIZER INC-2012072467

PATIENT
  Sex: Female
  Weight: 77.098 kg

DRUGS (5)
  1. CHANTIX [Suspect]
     Dosage: UNK
     Dates: end: 20120201
  2. DIVALPROEX SODIUM [Concomitant]
     Indication: CONVULSION
     Dosage: 1000 MG, DAILY AT NIGHT
  3. LEVOTHYROXINE SODIUM [Concomitant]
     Indication: THYROID DISORDER
     Dosage: 150 UG, DAILY
  4. CHANTIX [Suspect]
     Indication: SMOKING CESSATION THERAPY
     Dosage: 0.5 MG, DAILY
     Dates: start: 20111125
  5. FOSAMAX [Suspect]
     Indication: OSTEOPOROSIS
     Dosage: UNK
     Dates: start: 20120301, end: 20120311

REACTIONS (3)
  - ABNORMAL DREAMS [None]
  - MUSCLE SWELLING [None]
  - JOINT SWELLING [None]
